FAERS Safety Report 17004143 (Version 3)
Quarter: 2019Q4

REPORT INFORMATION
  Report Type: Spontaneous
  Country: US (occurrence: US)
  Receive Date: 20191107
  Receipt Date: 20191224
  Transmission Date: 20200122
  Serious: Yes (Hospitalization)
  Sender: FDA-Public Use
  Company Number: US-VERTEX PHARMACEUTICALS-2019-010760

PATIENT
  Age: 10 Year
  Sex: Male
  Weight: 42 kg

DRUGS (22)
  1. VITAMIN D3 [Concomitant]
     Active Substance: CHOLECALCIFEROL
     Dosage: 1 DOSAGE FORM,DAILY
     Route: 048
     Dates: start: 20190815
  2. PREVACID [Concomitant]
     Active Substance: LANSOPRAZOLE
     Dosage: 1 DOSAGE FORM, DAILY
     Route: 048
     Dates: start: 20191008
  3. ZYVOX [Concomitant]
     Active Substance: LINEZOLID
     Dosage: 1 DOSAGE FORM, BID
     Route: 048
     Dates: start: 20191108
  4. MIRALAX [Concomitant]
     Active Substance: POLYETHYLENE GLYCOL 3350
     Indication: CONSTIPATION
     Dosage: 1 DOSAGE FORM, IF NEEDED
     Route: 048
     Dates: start: 20181025
  5. ORKAMBI [Suspect]
     Active Substance: IVACAFTOR\LUMACAFTOR
     Indication: CYSTIC FIBROSIS
     Dosage: 2 DOSAGE FORM (100/125MG),BID
     Route: 048
     Dates: start: 20170425
  6. PULMOZYME [Concomitant]
     Active Substance: DORNASE ALFA
     Dosage: 2.5 MILLILITER, ONCE DAILY
     Dates: start: 20190130
  7. PERTZYE [Concomitant]
     Active Substance: PANCRELIPASE AMYLASE\PANCRELIPASE LIPASE\PANCRELIPASE PROTEASE
     Dosage: R CAPSULES WITH MEALS, 2-3 CAPSULES WITH SNAKS, DAILY
     Route: 048
  8. VERSED [Concomitant]
     Active Substance: MIDAZOLAM HYDROCHLORIDE
     Dosage: 1.5 MILLILITER
     Dates: start: 20191031
  9. SODIUM CHLORIDE. [Concomitant]
     Active Substance: SODIUM CHLORIDE
     Dosage: INHALE 1 VIAL, BID
     Dates: start: 20191016
  10. GUAIFENESIN. [Concomitant]
     Active Substance: GUAIFENESIN
     Dosage: 400 MG, BID
     Route: 048
  11. ASMANEX [Concomitant]
     Active Substance: MOMETASONE FUROATE
     Dosage: 1 PUFF, DAILY
     Dates: start: 20190308
  12. PROVENTIL HFA [SALBUTAMOL] [Concomitant]
     Indication: COUGH
     Dosage: 90 MICROGRAM, INHALE 2-4 PUFFS BY MOUTH AS NEEDED.
     Dates: start: 20191002
  13. ADVIL [IBUPROFEN] [Concomitant]
     Active Substance: IBUPROFEN
     Indication: HEADACHE
     Dosage: 150 MG. EVERY 6 HRS IF NEEDED
     Route: 048
     Dates: start: 20191118
  14. ADVIL [IBUPROFEN] [Concomitant]
     Active Substance: IBUPROFEN
     Indication: PAIN
  15. FLONASE [Concomitant]
     Active Substance: FLUTICASONE PROPIONATE
     Dosage: 50 MICROGRAM,2 SPRAY IN EACH NOSTRIL ONCE A DAY
     Dates: start: 20191008
  16. ZITHROMAX [Concomitant]
     Active Substance: AZITHROMYCIN DIHYDRATE
     Dosage: 500 M TABLET, THREE TIMES A WEEK
     Route: 048
     Dates: start: 20191102
  17. ZYRTEC [Concomitant]
     Active Substance: CETIRIZINE HYDROCHLORIDE
     Dosage: 10 MG, ONCE DAILY
     Route: 048
     Dates: start: 20190606
  18. TRILEPTAL [Concomitant]
     Active Substance: OXCARBAZEPINE
     Dosage: 1 DOSAGE FORM, BID
     Route: 048
     Dates: start: 20191031
  19. TOBI PODHALER [Concomitant]
     Active Substance: TOBRAMYCIN
     Dosage: UNK
     Dates: start: 20190326
  20. ALBUTEROL SULFATE. [Concomitant]
     Active Substance: ALBUTEROL SULFATE
     Dosage: 2.53 MILLIGRAM PER MILLILITRE
     Dates: start: 20191002
  21. CIPRO [Concomitant]
     Active Substance: CIPROFLOXACIN HYDROCHLORIDE
     Dosage: 500 MG, BID
     Route: 048
     Dates: start: 20191108
  22. ACTIGALL [Concomitant]
     Active Substance: URSODIOL
     Dosage: 1 DOSAGE FORM, BID
     Route: 048
     Dates: start: 20190722

REACTIONS (3)
  - Lower respiratory tract infection viral [Recovered/Resolved]
  - Secondary immunodeficiency [Not Recovered/Not Resolved]
  - Febrile convulsion [Recovered/Resolved]

NARRATIVE: CASE EVENT DATE: 20181217
